FAERS Safety Report 23170550 (Version 1)
Quarter: 2023Q4

REPORT INFORMATION
  Report Type: Spontaneous
  Country: IE (occurrence: IE)
  Receive Date: 20231110
  Receipt Date: 20231110
  Transmission Date: 20240109
  Serious: Yes (Other)
  Sender: FDA-Public Use
  Company Number: IE-ALCON LABORATORIES-ALC2023IE005032

PATIENT

DRUGS (7)
  1. BRINZOLAMIDE\TIMOLOL [Suspect]
     Active Substance: BRINZOLAMIDE\TIMOLOL
     Indication: Iridocyclitis
     Dosage: UNK, BID (IN LEFT EYE)
     Route: 047
  2. CHLORAMPHENICOL [Suspect]
     Active Substance: CHLORAMPHENICOL
     Dosage: UNK, QH
     Route: 047
  3. CHLORAMPHENICOL [Suspect]
     Active Substance: CHLORAMPHENICOL
     Indication: Iridocyclitis
     Dosage: UNK, QID (IN LEFT EYE)
     Route: 047
  4. CYCLOPENTOLATE HYDROCHLORIDE [Suspect]
     Active Substance: CYCLOPENTOLATE HYDROCHLORIDE
     Indication: Iridocyclitis
     Dosage: 1 %, TID (IN LEFT EYE)
     Route: 047
  5. PREDNISOLONE ACETATE [Suspect]
     Active Substance: PREDNISOLONE ACETATE
     Indication: Iridocyclitis
     Dosage: 1 %, QH (IN LEFT EYE)
     Route: 047
  6. DEXAMETHASONE [Concomitant]
     Active Substance: DEXAMETHASONE
     Indication: Product used for unknown indication
     Dosage: UNK
     Route: 065
  7. MYDRICAINE [Concomitant]
     Indication: Product used for unknown indication
     Dosage: UNK
     Route: 065

REACTIONS (3)
  - Iridocyclitis [Unknown]
  - Condition aggravated [Unknown]
  - Product use in unapproved indication [Unknown]
